FAERS Safety Report 6549666-0 (Version None)
Quarter: 2010Q1

REPORT INFORMATION
  Report Type: 
  Country: None (occurrence: None)
  Receive Date: 20100125
  Receipt Date: 20100118
  Transmission Date: 20100710
  Serious: Yes (Hospitalization)
  Sender: FDA-Public Use
  Company Number: US-BAYER-200941803NA

PATIENT
  Age: 80 Year
  Sex: Male
  Weight: 62 kg

DRUGS (23)
  1. NEXAVAR [Suspect]
     Indication: HEPATIC NEOPLASM MALIGNANT
     Dosage: AS USED: 400-200 MG  UNIT DOSE: 200 MG
     Route: 048
     Dates: start: 20091109, end: 20091122
  2. NEXAVAR [Suspect]
     Dosage: TOTAL DAILY DOSE: 400 MG  UNIT DOSE: 200 MG
     Route: 048
     Dates: start: 20091130, end: 20091222
  3. AMBIEN [Concomitant]
     Indication: INSOMNIA
     Dosage: AT BEDTIME
     Route: 048
     Dates: start: 20090817
  4. AMLODIPINE [Concomitant]
     Dosage: TOTAL DAILY DOSE: 5 MG
     Route: 048
     Dates: start: 20091207
  5. AMLODIPINE [Concomitant]
     Dosage: TOTAL DAILY DOSE: 10 MG
     Route: 048
  6. ASPIRIN [Concomitant]
     Dosage: TOTAL DAILY DOSE: 81 MG
     Route: 048
     Dates: start: 20060128
  7. BACTRIM [Concomitant]
     Indication: INFECTION PROPHYLAXIS
     Dosage: 160-800 MG
     Route: 048
  8. COLACE [Concomitant]
     Dosage: TOTAL DAILY DOSE: 200 MG
     Route: 048
  9. COMPAZINE [Concomitant]
     Indication: NAUSEA
     Dosage: EVERY 8 HOURS
     Route: 048
     Dates: start: 20090831
  10. DIOVAN [Concomitant]
     Dosage: TOTAL DAILY DOSE: 80 MG
     Route: 048
     Dates: start: 20090918
  11. HEPARIN LOCK-FLUSH [Concomitant]
     Dosage: TOTAL DAILY DOSE: 10 U
     Route: 042
     Dates: start: 20091009
  12. LANTUS [Concomitant]
     Dosage: UNITS PER ML
     Route: 058
  13. MAG OX [Concomitant]
     Dosage: TOTAL DAILY DOSE: 400 MG
     Route: 048
     Dates: start: 20090904
  14. METFORMIN [Concomitant]
     Dosage: TOTAL DAILY DOSE: 2000 MG
     Route: 048
     Dates: start: 20090825
  15. MULTI-VITAMINS [Concomitant]
     Dosage: 1
     Dates: start: 20071206
  16. PREDNISONE [Concomitant]
     Dosage: TOTAL DAILY DOSE: 60 MG
     Route: 048
     Dates: start: 20090930
  17. SODIUM CHLORIDE 0.9% [Concomitant]
     Dosage: TOTAL DAILY DOSE: 2 ML
     Route: 042
     Dates: start: 20091009
  18. TOPROL-XL [Concomitant]
     Dosage: TOTAL DAILY DOSE: 100 MG
     Route: 048
     Dates: start: 20091214
  19. ZOFRAN [Concomitant]
     Indication: NAUSEA
     Dosage: AS USED: 8 MG
     Route: 048
     Dates: start: 20090831
  20. MOTRIN [Concomitant]
     Dosage: 400-800 MG EVERY 6 HOURS
  21. LANTUS [Concomitant]
     Dosage: TOTAL DAILY DOSE: 10 U
     Route: 058
  22. POTASSIUM CHLORIDE SLOW RELEASE [Concomitant]
     Dosage: TOTAL DAILY DOSE: 20 MEQ
     Route: 048
  23. VALSARTAN [Concomitant]
     Dosage: TOTAL DAILY DOSE: 80 MG
     Route: 048

REACTIONS (5)
  - ATRIAL FIBRILLATION [None]
  - BLOOD PRESSURE INCREASED [None]
  - CHOLANGITIS [None]
  - PERICARDITIS [None]
  - PYREXIA [None]
